FAERS Safety Report 22768793 (Version 6)
Quarter: 2024Q2

REPORT INFORMATION
  Report Type: Spontaneous
  Country: US (occurrence: US)
  Receive Date: 20230731
  Receipt Date: 20240611
  Transmission Date: 20240715
  Serious: No
  Sender: FDA-Public Use
  Company Number: US-PFIZER INC-PV202300127279

PATIENT
  Age: 79 Year
  Sex: Male
  Weight: 81.633 kg

DRUGS (1)
  1. TIKOSYN [Suspect]
     Active Substance: DOFETILIDE
     Dosage: TAKE 1 CAPSULE (250 MCG TOTAL) BY MOUTH EVERY 12 HOURS
     Route: 048

REACTIONS (1)
  - Visual impairment [Unknown]
